FAERS Safety Report 17973750 (Version 14)
Quarter: 2023Q1

REPORT INFORMATION
  Report Type: Report from Study
  Country: HU (occurrence: HU)
  Receive Date: 20200702
  Receipt Date: 20230113
  Transmission Date: 20230418
  Serious: Yes (Hospitalization, Other)
  Sender: FDA-Public Use
  Company Number: NVSC2020HU181922

PATIENT
  Sex: Female
  Weight: 5.4 kg

DRUGS (6)
  1. ZOLGENSMA [Suspect]
     Active Substance: ONASEMNOGENE ABEPARVOVEC-XIOI
     Indication: Spinal muscular atrophy
     Dosage: 31 ML, ONCE/SINGLE (8.3 ML (FREQUENCY 3 X) EXP DATE: 26 JAN 2021, 5.5 ML (FREQUENCY 1X) 25 JAN 2021)
     Route: 042
     Dates: start: 20200527
  2. NUSINERSEN [Concomitant]
     Active Substance: NUSINERSEN
     Indication: Spinal muscular atrophy
     Dosage: 2 UNK
     Route: 065
  3. DEXPANTHENOL [Concomitant]
     Active Substance: DEXPANTHENOL
     Indication: Eructation
     Dosage: 1 ML
     Route: 065
     Dates: start: 2020
  4. VITAMIN D [Concomitant]
     Active Substance: VITAMIN D NOS
     Indication: Product used for unknown indication
     Dosage: 2 DRP, QD
     Route: 065
     Dates: start: 2020
  5. PREDNISOLONE [Concomitant]
     Active Substance: PREDNISOLONE
     Indication: Prophylaxis
     Dosage: 1X 5 MG (1 MG/KG)
     Route: 054
     Dates: start: 20200526
  6. FAMOTIDINE [Concomitant]
     Active Substance: FAMOTIDINE
     Indication: Gastric disorder
     Dosage: UNK (2X 2.5 MG)
     Route: 065
     Dates: start: 20200526

REACTIONS (22)
  - Fluid intake reduced [Unknown]
  - Pyrexia [Recovered/Resolved]
  - Leukopenia [Unknown]
  - Granulocytopenia [Unknown]
  - Neutropenia [Recovering/Resolving]
  - Bradycardia [Unknown]
  - Heart rate abnormal [Recovered/Resolved]
  - Thrombocytopenia [Unknown]
  - Aspartate aminotransferase increased [Recovering/Resolving]
  - Enterobacter infection [Unknown]
  - White blood cell count decreased [Unknown]
  - Granulocyte count decreased [Unknown]
  - Pyrexia [Unknown]
  - Alanine aminotransferase increased [Unknown]
  - Platelet count decreased [Recovered/Resolved]
  - Blood lactate dehydrogenase increased [Recovered/Resolved]
  - Flatulence [Recovered/Resolved]
  - Neuritis [Recovered/Resolved]
  - Troponin I increased [Recovered/Resolved]
  - Hepatic enzyme increased [Recovering/Resolving]
  - Hyperaemia [Unknown]
  - Transaminases increased [Unknown]

NARRATIVE: CASE EVENT DATE: 20200101
